FAERS Safety Report 5211818-X (Version None)
Quarter: 2007Q1

REPORT INFORMATION
  Report Type: 
  Country: None (occurrence: None)
  Receive Date: 20070116
  Receipt Date: 20061229
  Transmission Date: 20070707
  Serious: Yes (Other)
  Sender: FDA-Public Use
  Company Number: ACO_0307_2007

PATIENT
  Age: 34 Year
  Sex: Male

DRUGS (3)
  1. TERNELIN [Suspect]
     Dosage: DF UNK PO
     Route: 048
  2. LOXOPROFEN SODIUM [Concomitant]
  3. ALDIOXA [Concomitant]

REACTIONS (1)
  - LEUKOCYTOCLASTIC VASCULITIS [None]
